FAERS Safety Report 6385728-9 (Version None)
Quarter: 2009Q4

REPORT INFORMATION
  Report Type: 
  Country: None (occurrence: None)
  Receive Date: 20091002
  Receipt Date: 20081003
  Transmission Date: 20100525
  Serious: No
  Sender: FDA-Public Use
  Company Number: US-ASTRAZENECA-2008UW21607

PATIENT
  Age: 63 Year
  Sex: Female

DRUGS (6)
  1. ARIMIDEX [Suspect]
     Indication: BREAST CANCER
     Route: 048
     Dates: start: 20070401
  2. CLARITIN [Concomitant]
  3. VITAMINS [Concomitant]
  4. CALCIUM [Concomitant]
  5. MULTI-VITAMIN [Concomitant]
  6. OMEGA FATTY ACIDS [Concomitant]

REACTIONS (3)
  - ARTHRITIS [None]
  - PRURITUS [None]
  - SKIN ULCER [None]
